FAERS Safety Report 7152688-2 (Version None)
Quarter: 2010Q4

REPORT INFORMATION
  Report Type: 
  Country: None (occurrence: None)
  Receive Date: 20101123
  Receipt Date: 20100903
  Transmission Date: 20110411
  Serious: No
  Sender: FDA-Public Use
  Company Number: 018311

PATIENT
  Sex: Female

DRUGS (1)
  1. CIMZIA [Suspect]
     Indication: CROHN'S DISEASE
     Dosage: DOSE 2 SHOTS, INITIAL INJECTION SUBCUTAENOUS
     Route: 058
     Dates: start: 20100902

REACTIONS (1)
  - HEADACHE [None]
